FAERS Safety Report 21622684 (Version 1)
Quarter: 2022Q4

REPORT INFORMATION
  Report Type: Spontaneous
  Country: US (occurrence: None)
  Receive Date: 20221120
  Receipt Date: 20221120
  Transmission Date: 20230113
  Serious: No
  Sender: FDA-Public Use
  Company Number: None

PATIENT
  Age: 23 Year
  Sex: Female

DRUGS (1)
  1. ZAFEMY [Suspect]
     Active Substance: ETHINYL ESTRADIOL\NORELGESTROMIN
     Dates: start: 20221015, end: 20221119

REACTIONS (5)
  - Device adhesion issue [None]
  - Application site pruritus [None]
  - Application site swelling [None]
  - Skin haemorrhage [None]
  - Product substitution issue [None]
